FAERS Safety Report 4915073-7 (Version None)
Quarter: 2006Q1

REPORT INFORMATION
  Report Type: 
  Country: None (occurrence: None)
  Receive Date: 20060215
  Receipt Date: 20060215
  Transmission Date: 20060701
  Serious: Yes (Hospitalization)
  Sender: FDA-Public Use
  Company Number: None

PATIENT
  Sex: Female
  Weight: 77.1115 kg

DRUGS (14)
  1. FENTANYL [Suspect]
     Indication: BACK PAIN
     Dosage: TOPICAL Q 3 DAYS [PRIOR TO ADMISSION]
     Route: 061
  2. SYNTHROID [Concomitant]
  3. NEXIUM [Concomitant]
  4. PLAVIX [Concomitant]
  5. METHOPROLOL [Concomitant]
  6. CARBIDOPA AND LEVODOPA [Concomitant]
  7. ELAVIL [Concomitant]
  8. PROZAC [Concomitant]
  9. NORVASC [Concomitant]
  10. TEMAZEPAM [Concomitant]
  11. ASPIRIN [Concomitant]
  12. TORSEMIDE [Concomitant]
  13. EVOXAC [Concomitant]
  14. ZEMPLAR [Concomitant]

REACTIONS (5)
  - ASTHENIA [None]
  - BLOOD GLUCOSE INCREASED [None]
  - DEPRESSED LEVEL OF CONSCIOUSNESS [None]
  - DIARRHOEA [None]
  - FATIGUE [None]
